FAERS Safety Report 15381948 (Version 1)
Quarter: 2018Q3

REPORT INFORMATION
  Report Type: Spontaneous
  Country: US (occurrence: US)
  Receive Date: 20180913
  Receipt Date: 20180913
  Transmission Date: 20181010
  Serious: No
  Sender: FDA-Public Use
  Company Number: US-ASTELLAS-2018US007162

PATIENT
  Age: 91 Year
  Sex: Male

DRUGS (1)
  1. XTANDI [Suspect]
     Active Substance: ENZALUTAMIDE
     Indication: HORMONE-REFRACTORY PROSTATE CANCER
     Route: 048
     Dates: start: 201712

REACTIONS (7)
  - Abdominal discomfort [Unknown]
  - Influenza [Recovering/Resolving]
  - Dizziness [Unknown]
  - Headache [Unknown]
  - Hot flush [Unknown]
  - Fatigue [Unknown]
  - Diarrhoea [Unknown]

NARRATIVE: CASE EVENT DATE: 20171204
